FAERS Safety Report 7525294-5 (Version None)
Quarter: 2011Q2

REPORT INFORMATION
  Report Type: 
  Country: None (occurrence: None)
  Receive Date: 20110606
  Receipt Date: 20110526
  Transmission Date: 20111010
  Serious: Yes (Hospitalization)
  Sender: FDA-Public Use
  Company Number: ES-JNJFOC-20110509579

PATIENT
  Sex: Female
  Weight: 62.5 kg

DRUGS (4)
  1. PALIPERIDONE [Suspect]
     Dates: start: 20110309, end: 20110309
  2. PALIPERIDONE [Suspect]
     Dates: start: 20110210, end: 20110210
  3. PALIPERIDONE [Suspect]
     Indication: SCHIZOPHRENIA, PARANOID TYPE
     Dates: start: 20110411, end: 20110411
  4. PALIPERIDONE [Suspect]
     Dates: start: 20110511, end: 20110511

REACTIONS (1)
  - PSYCHOTIC DISORDER [None]
